FAERS Safety Report 14289729 (Version 1)
Quarter: 2017Q4

REPORT INFORMATION
  Report Type: Spontaneous
  Country: US (occurrence: US)
  Receive Date: 20171214
  Receipt Date: 20171214
  Transmission Date: 20180321
  Serious: Yes (Other)
  Sender: FDA-Public Use
  Company Number: US-PFIZER INC-2017530778

PATIENT
  Sex: Female

DRUGS (2)
  1. TIKOSYN [Suspect]
     Active Substance: DOFETILIDE
     Dosage: 250MCG TWICE DAILY
  2. CELEBREX [Suspect]
     Active Substance: CELECOXIB
     Dosage: 200MG TWICE DAILY

REACTIONS (2)
  - Atrial fibrillation [Unknown]
  - Goitre [Unknown]
